FAERS Safety Report 6701269-0 (Version None)
Quarter: 2010Q2

REPORT INFORMATION
  Report Type: 
  Country: None (occurrence: None)
  Receive Date: 20100428
  Receipt Date: 20100419
  Transmission Date: 20101027
  Serious: Yes (Hospitalization)
  Sender: FDA-Public Use
  Company Number: DE-BRISTOL-MYERS SQUIBB COMPANY-15020514

PATIENT
  Age: 65 Year
  Sex: Male

DRUGS (6)
  1. APIXABAN [Suspect]
     Indication: THROMBOSIS PROPHYLAXIS
     Dosage: 1DF=2 (UNITS NOT SPECIFIED) INTERRUPTED ON 13MAR2010; RESTART ON 30MAR2010
     Route: 048
     Dates: start: 20091012
  2. WARFARIN SODIUM [Suspect]
     Indication: THROMBOSIS PROPHYLAXIS
     Dosage: INTERRUPTED ON 13MAR2010; RESTART 19MAR2010
     Route: 048
     Dates: start: 20091012
  3. PLACEBO [Suspect]
     Indication: THROMBOSIS PROPHYLAXIS
     Dosage: RESTART ON 30MAR2010 WITH APIXABAN; WARFARIN-19MAR2010
     Route: 048
     Dates: start: 20091012
  4. BISOPROLOL [Concomitant]
  5. SIMVASTATIN [Concomitant]
  6. PANTOZOL [Concomitant]

REACTIONS (2)
  - MALLORY-WEISS SYNDROME [None]
  - UPPER GASTROINTESTINAL HAEMORRHAGE [None]
